FAERS Safety Report 6061918-X (Version None)
Quarter: 2009Q1

REPORT INFORMATION
  Report Type: 
  Country: None (occurrence: None)
  Receive Date: 20090202
  Receipt Date: 20090126
  Transmission Date: 20090719
  Serious: Yes (Other)
  Sender: FDA-Public Use
  Company Number: PHHY2009DE03072

PATIENT
  Sex: Female

DRUGS (1)
  1. RASILEZ [Suspect]
     Indication: HYPERTENSION
     Dosage: 150 MG

REACTIONS (4)
  - BLOOD PRESSURE INCREASED [None]
  - CONSTIPATION [None]
  - PALPITATIONS [None]
  - PARADOXICAL PRESSOR RESPONSE [None]
